FAERS Safety Report 5520719-9 (Version None)
Quarter: 2007Q4

REPORT INFORMATION
  Report Type: 
  Country: None (occurrence: None)
  Receive Date: 20071115
  Receipt Date: 20071115
  Transmission Date: 20080405
  Serious: No
  Sender: FDA-Public Use
  Company Number: None

PATIENT
  Age: 56 Year
  Sex: Male

DRUGS (1)
  1. LISINOPRIL [Suspect]
     Dosage: 10MG EVERY DAY PO
     Route: 048
     Dates: start: 20051020, end: 20060208

REACTIONS (2)
  - COUGH [None]
  - WHEEZING [None]
